FAERS Safety Report 25667976 (Version 2)
Quarter: 2025Q3

REPORT INFORMATION
  Report Type: Spontaneous
  Country: GB (occurrence: GB)
  Receive Date: 20250812
  Receipt Date: 20250822
  Transmission Date: 20251020
  Serious: Yes (Death, Life-Threatening, Hospitalization, Other)
  Sender: BRISTOL-MYERS SQUIBB COMPANY
  Company Number: GB-BRISTOL-MYERS SQUIBB COMPANY-2025-111379

PATIENT
  Age: 55 Year
  Sex: Female

DRUGS (2)
  1. CAMZYOS [Suspect]
     Active Substance: MAVACAMTEN
     Indication: Product used for unknown indication
  2. CAMZYOS [Suspect]
     Active Substance: MAVACAMTEN

REACTIONS (2)
  - Cardiac arrest [Fatal]
  - Ejection fraction decreased [Unknown]

NARRATIVE: CASE EVENT DATE: 20250801
